FAERS Safety Report 14112168 (Version 1)
Quarter: 2017Q4

REPORT INFORMATION
  Report Type: Report from Study
  Country: IE (occurrence: IE)
  Receive Date: 20171020
  Receipt Date: 20171020
  Transmission Date: 20180321
  Serious: Yes (Other)
  Sender: FDA-Public Use
  Company Number: IE-EXELIXIS-CABO-17010948

PATIENT
  Age: 53 Year

DRUGS (1)
  1. CABOMETYX [Suspect]
     Active Substance: CABOZANTINIB S-MALATE
     Indication: RENAL CELL CARCINOMA
     Dosage: 40 MG, QD
     Route: 048
     Dates: start: 20170421, end: 20170522

REACTIONS (1)
  - Drug tolerance [Recovering/Resolving]

NARRATIVE: CASE EVENT DATE: 20170522
